FAERS Safety Report 5545574-2 (Version None)
Quarter: 2007Q4

REPORT INFORMATION
  Report Type: 
  Country: None (occurrence: None)
  Receive Date: 20071211
  Receipt Date: 20071130
  Transmission Date: 20080405
  Serious: Yes (Hospitalization, Other)
  Sender: FDA-Public Use
  Company Number: ES-JNJFOC-20071109750

PATIENT
  Age: 49 Year
  Sex: Female

DRUGS (4)
  1. REMICADE [Suspect]
     Indication: RHEUMATOID ARTHRITIS
     Dosage: FOUR DOSES
     Route: 042
  2. DACORTIN [Concomitant]
  3. METHOTREXATE [Concomitant]
  4. CEMIDON [Concomitant]

REACTIONS (3)
  - CENTRAL NERVOUS SYSTEM LESION [None]
  - HEMIPARESIS [None]
  - TUBERCULOSIS SKIN TEST POSITIVE [None]
